FAERS Safety Report 9003497 (Version 5)
Quarter: 2013Q2

REPORT INFORMATION
  Report Type: Spontaneous
  Country: US (occurrence: US)
  Receive Date: 20130108
  Receipt Date: 20130611
  Transmission Date: 20140414
  Serious: Yes (Hospitalization, Disabling, Other)
  Sender: FDA-Public Use
  Company Number: US-009507513-1212USA010557

PATIENT
  Sex: Female
  Weight: 60.77 kg

DRUGS (8)
  1. FOSAMAX [Suspect]
     Indication: OSTEOPENIA
     Dosage: 70 MG, UNK
     Route: 048
     Dates: start: 20020111, end: 200612
  2. FOSAMAX [Suspect]
     Indication: OSTEOPOROSIS
  3. BONIVA [Suspect]
     Indication: OSTEOPENIA
     Dosage: 150 MG, QM
     Route: 048
     Dates: start: 20061207, end: 20110304
  4. BONIVA [Suspect]
     Indication: OSTEOPOROSIS
     Dosage: 150 MG, QM
     Route: 048
     Dates: start: 201103, end: 201110
  5. PROTONIX [Concomitant]
     Indication: GASTROOESOPHAGEAL REFLUX DISEASE
     Dosage: UNK
     Dates: start: 20040324, end: 20110609
  6. METFORMIN HYDROCHLORIDE [Concomitant]
     Indication: TYPE 2 DIABETES MELLITUS
     Dosage: UNK
     Dates: start: 20031218, end: 20110101
  7. CORTICOSTEROIDS (UNSPECIFIED) [Concomitant]
     Indication: PRODUCT USED FOR UNKNOWN INDICATION
     Dosage: UNK
     Dates: start: 1990, end: 201209
  8. HYDROCHLOROTHIAZIDE (+) TRIAMTERENE [Concomitant]
     Indication: HYPERTENSION
     Dosage: UNK
     Dates: start: 20020111, end: 20060122

REACTIONS (35)
  - Femur fracture [Recovered/Resolved]
  - Open reduction of fracture [Recovered/Resolved]
  - Open reduction of fracture [Recovered/Resolved]
  - Osteoporosis [Unknown]
  - Multiple fractures [Unknown]
  - Fall [Recovered/Resolved]
  - Rotator cuff repair [Recovered/Resolved]
  - Appendicitis [Unknown]
  - Low turnover osteopathy [Unknown]
  - Femur fracture [Recovered/Resolved]
  - Femur fracture [Unknown]
  - Rhinitis allergic [Not Recovered/Not Resolved]
  - Osteoarthritis [Not Recovered/Not Resolved]
  - Arthroscopy [Recovered/Resolved]
  - Joint range of motion decreased [Recovered/Resolved]
  - Abdominal hernia [Unknown]
  - Fall [Unknown]
  - Scoliosis [Unknown]
  - Thoracic vertebral fracture [Recovering/Resolving]
  - Hyperlipidaemia [Unknown]
  - Depression [Recovering/Resolving]
  - Anxiety [Recovering/Resolving]
  - Osteoarthritis [Not Recovered/Not Resolved]
  - Hypertension [Unknown]
  - Transfusion [Unknown]
  - Haemorrhagic anaemia [Unknown]
  - Rotator cuff syndrome [Recovered/Resolved]
  - Ischaemia [Unknown]
  - Scoliosis [Unknown]
  - Spinal osteoarthritis [Unknown]
  - Aortic arteriosclerosis [Unknown]
  - Electrocardiogram T wave abnormal [Unknown]
  - Arthralgia [Unknown]
  - Hypersensitivity [Unknown]
  - Pain in extremity [Unknown]
